FAERS Safety Report 10207837 (Version 1)
Quarter: 2014Q2

REPORT INFORMATION
  Report Type: Spontaneous
  Country: US (occurrence: US)
  Receive Date: 20140530
  Receipt Date: 20140530
  Transmission Date: 20141212
  Serious: No
  Sender: FDA-Public Use
  Company Number: US-GLAXOSMITHKLINE-A1062104A

PATIENT
  Sex: Female

DRUGS (6)
  1. VENTOLIN [Suspect]
     Indication: CHRONIC OBSTRUCTIVE PULMONARY DISEASE
     Dosage: 2PUFF AS REQUIRED
     Route: 055
     Dates: start: 20131015
  2. PLAVIX [Concomitant]
  3. IMODIUM [Concomitant]
  4. SERTRALINE [Concomitant]
  5. STATINS [Concomitant]
  6. FUROSEMIDE [Concomitant]

REACTIONS (4)
  - Drug ineffective [Unknown]
  - Peripheral swelling [Unknown]
  - Pharyngeal oedema [Unknown]
  - Malaise [Unknown]
